FAERS Safety Report 19771470 (Version 1)
Quarter: 2021Q3

REPORT INFORMATION
  Report Type: Spontaneous
  Country: US (occurrence: US)
  Receive Date: 20210901
  Receipt Date: 20210901
  Transmission Date: 20211014
  Serious: No
  Sender: FDA-Public Use
  Company Number: US-TARO-2021TAR00025

PATIENT
  Sex: Female

DRUGS (1)
  1. METRONIDAZOLE GEL USP 0.75% [Suspect]
     Active Substance: METRONIDAZOLE
     Indication: PRODUCT USED FOR UNKNOWN INDICATION
     Dosage: APPLIED TO FACE AT BEDTIME
     Route: 061

REACTIONS (2)
  - Application site erythema [Unknown]
  - Application site inflammation [Unknown]
